FAERS Safety Report 9345404 (Version 15)
Quarter: 2014Q2

REPORT INFORMATION
  Report Type: Report from Study
  Country: CA (occurrence: CA)
  Receive Date: 20130613
  Receipt Date: 20140515
  Transmission Date: 20141212
  Serious: Yes (Hospitalization, Other)
  Sender: FDA-Public Use
  Company Number: CA-ROCHE-1234229

PATIENT
  Age: 57 Year
  Sex: Male
  Weight: 86.2 kg

DRUGS (7)
  1. ACTEMRA [Suspect]
     Indication: RHEUMATOID ARTHRITIS
     Route: 042
     Dates: start: 20130506
  2. ACTEMRA [Suspect]
     Route: 042
     Dates: start: 20130828
  3. ACTEMRA [Suspect]
     Route: 042
     Dates: start: 20140226
  4. PREDNISONE [Concomitant]
     Route: 065
  5. PREDNISONE [Concomitant]
     Route: 065
  6. OMEGA 3 [Concomitant]
     Route: 065
  7. METHOTREXATE [Concomitant]

REACTIONS (9)
  - Pyrexia [Unknown]
  - Rheumatoid arthritis [Recovering/Resolving]
  - Pneumonia [Unknown]
  - Dyspnoea [Not Recovered/Not Resolved]
  - Hypertension [Unknown]
  - Oropharyngeal pain [Not Recovered/Not Resolved]
  - Productive cough [Not Recovered/Not Resolved]
  - Drug hypersensitivity [Unknown]
  - Malaise [Not Recovered/Not Resolved]
